FAERS Safety Report 4898676-8 (Version None)
Quarter: 2006Q1

REPORT INFORMATION
  Report Type: 
  Country: None (occurrence: None)
  Receive Date: 20060202
  Receipt Date: 20050808
  Transmission Date: 20060701
  Serious: Yes (Death, Hospitalization)
  Sender: FDA-Public Use
  Company Number: GB-BOEHRINGER INGELHEIM PHARMACEUTICALS, INC.-2005-UK-01461UK

PATIENT
  Sex: Female

DRUGS (10)
  1. SPIRIVA [Suspect]
     Indication: CHRONIC OBSTRUCTIVE PULMONARY DISEASE
     Route: 055
  2. VENTOLIN [Suspect]
  3. FLIXOTIDE EVOHALER [Suspect]
  4. CLOTRIMAZOLE [Suspect]
  5. ASPIRIN [Suspect]
  6. CALCICHEW D3 [Suspect]
  7. GAVISCON [Suspect]
  8. PANTOPRAZOLE [Suspect]
  9. PREDNISOLONE [Suspect]
  10. RAMIPRIL [Suspect]

REACTIONS (3)
  - CARDIAC FAILURE [None]
  - PANCREATITIS ACUTE [None]
  - PERITONITIS [None]
